FAERS Safety Report 4497981-7 (Version None)
Quarter: 2004Q4

REPORT INFORMATION
  Report Type: 
  Country: None (occurrence: None)
  Receive Date: 20041105
  Receipt Date: 20041029
  Transmission Date: 20050328
  Serious: Yes (Hospitalization)
  Sender: FDA-Public Use
  Company Number: KII-2004-0013742

PATIENT
  Age: 39 Year
  Sex: Female

DRUGS (7)
  1. OXYCODONE HCL [Suspect]
     Dosage: ORAL
     Route: 048
  2. MORPHINE SULFATE [Suspect]
     Dosage: ORAL
     Route: 048
  3. AMITRIPTYLINE (AMITRIPTYLINE) [Suspect]
     Dosage: ORAL
     Route: 048
  4. CYCLOBENZAPRINE (CYCLOBENZAPRINE) [Suspect]
     Dosage: ORAL
     Route: 048
  5. COCAINE (COCAINE) [Suspect]
  6. MARIJUANA (CANNABIS) [Suspect]
  7. BARBITURATES () [Suspect]
     Dosage: ORAL
     Route: 048

REACTIONS (10)
  - ABNORMAL BEHAVIOUR [None]
  - AGITATION [None]
  - DEPRESSED LEVEL OF CONSCIOUSNESS [None]
  - DRUG EFFECT DECREASED [None]
  - DRUG SCREEN POSITIVE [None]
  - ELECTROCARDIOGRAM QRS COMPLEX PROLONGED [None]
  - HEART RATE INCREASED [None]
  - MULTIPLE DRUG OVERDOSE [None]
  - RESPIRATION ABNORMAL [None]
  - TREATMENT NONCOMPLIANCE [None]
